FAERS Safety Report 4614952-8 (Version None)
Quarter: 2005Q1

REPORT INFORMATION
  Report Type: 
  Country: None (occurrence: None)
  Receive Date: 20050318
  Receipt Date: 20050318
  Transmission Date: 20050727
  Serious: Yes (Life-Threatening, Hospitalization)
  Sender: FDA-Public Use
  Company Number: None

PATIENT
  Age: 60 Year
  Sex: Female
  Weight: 97 kg

DRUGS (2)
  1. ZYVOX [Suspect]
     Indication: STAPHYLOCOCCAL INFECTION
     Dosage: IV Q 12 H (ON PO AS OUTPT FOR ~ 2WKS)
     Route: 042
  2. ROCEPHIN [Concomitant]

REACTIONS (1)
  - THROMBOCYTOPENIA [None]
